FAERS Safety Report 8625502-3 (Version None)
Quarter: 2012Q3

REPORT INFORMATION
  Report Type: 
  Country: None (occurrence: None)
  Receive Date: 20120827
  Receipt Date: 20120817
  Transmission Date: 20120928
  Serious: Yes (Other)
  Sender: FDA-Public Use
  Company Number: US-ASTRAZENECA-2011SE75859

PATIENT
  Age: 46 Year
  Sex: Female
  Weight: 72.6 kg

DRUGS (4)
  1. SEROQUEL XR [Suspect]
     Indication: MANIA
     Route: 048
  2. SEROQUEL XR [Suspect]
     Indication: BIPOLAR DISORDER
     Route: 048
  3. CELEXA [Concomitant]
     Indication: DEPRESSION
  4. SEROQUEL XR [Suspect]
     Indication: SLEEP DISORDER
     Route: 048

REACTIONS (8)
  - FOOT DEFORMITY [None]
  - POOR QUALITY SLEEP [None]
  - DYSSTASIA [None]
  - MIDDLE INSOMNIA [None]
  - ADVERSE EVENT [None]
  - OFF LABEL USE [None]
  - DRUG DOSE OMISSION [None]
  - INSOMNIA [None]
